FAERS Safety Report 18731906 (Version 2)
Quarter: 2021Q1

REPORT INFORMATION
  Report Type: Report from Study
  Country: US (occurrence: US)
  Receive Date: 20210112
  Receipt Date: 20210119
  Transmission Date: 20210419
  Serious: Yes (Other)
  Sender: FDA-Public Use
  Company Number: NVSC2020US348532

PATIENT
  Sex: Male

DRUGS (1)
  1. COSENTYX [Suspect]
     Active Substance: SECUKINUMAB
     Indication: PSORIASIS
     Dosage: 300 MG/KG, Q4W
     Route: 065
     Dates: start: 20180927, end: 20190801

REACTIONS (1)
  - Anal abscess [Unknown]

NARRATIVE: CASE EVENT DATE: 201907
